FAERS Safety Report 8093392-6 (Version None)
Quarter: 2012Q1

REPORT INFORMATION
  Report Type: 
  Country: None (occurrence: None)
  Receive Date: 20120131
  Receipt Date: 20120126
  Transmission Date: 20120608
  Serious: Yes (Other)
  Sender: FDA-Public Use
  Company Number: CA-PFIZER INC-2012023079

PATIENT
  Sex: Male

DRUGS (1)
  1. VARENICLINE TARTRATE [Suspect]

REACTIONS (7)
  - PARANOIA [None]
  - AGGRESSION [None]
  - CONFUSIONAL STATE [None]
  - ERECTION INCREASED [None]
  - NERVOUSNESS [None]
  - SUICIDAL IDEATION [None]
  - EMOTIONAL DISORDER [None]
